FAERS Safety Report 23961601 (Version 1)
Quarter: 2024Q2

REPORT INFORMATION
  Report Type: Spontaneous
  Country: US (occurrence: US)
  Receive Date: 20240611
  Receipt Date: 20240611
  Transmission Date: 20240715
  Serious: No
  Sender: FDA-Public Use
  Company Number: US-MYLANLABS-2024M1051034

PATIENT

DRUGS (2)
  1. ZOLOFT [Suspect]
     Active Substance: SERTRALINE HYDROCHLORIDE
     Indication: Product used for unknown indication
     Dosage: UNK
     Route: 065
  2. AUVELITY [Suspect]
     Active Substance: BUPROPION HYDROCHLORIDE\DEXTROMETHORPHAN HYDROBROMIDE
     Indication: Product used for unknown indication
     Dosage: UNK
     Route: 065

REACTIONS (12)
  - Feeling drunk [Unknown]
  - Balance disorder [Unknown]
  - Impaired driving ability [Unknown]
  - Throat tightness [Unknown]
  - Pharyngeal swelling [Unknown]
  - Nasal congestion [Unknown]
  - Dyspnoea [Unknown]
  - Disturbance in attention [Unknown]
  - Nasopharyngitis [Unknown]
  - Euphoric mood [Unknown]
  - Confusional state [Unknown]
  - Dizziness [Unknown]
